FAERS Safety Report 9323031 (Version 2)
Quarter: 2013Q4

REPORT INFORMATION
  Report Type: Report from Study
  Country: DE (occurrence: DE)
  Receive Date: 20130603
  Receipt Date: 20131101
  Transmission Date: 20140711
  Serious: Yes (Hospitalization)
  Sender: FDA-Public Use
  Company Number: DE-ROCHE-1231026

PATIENT
  Sex: Female
  Weight: 73 kg

DRUGS (3)
  1. PEG-INTERFERON ALFA 2A [Suspect]
     Indication: CHRONIC HEPATITIS C
     Route: 058
     Dates: start: 20121102
  2. RIBAVIRIN [Suspect]
     Indication: CHRONIC HEPATITIS C
     Route: 065
  3. TELAPREVIR [Suspect]
     Indication: CHRONIC HEPATITIS C
     Route: 065

REACTIONS (1)
  - Skin disorder [Recovered/Resolved]
